FAERS Safety Report 8077439-9 (Version None)
Quarter: 2012Q1

REPORT INFORMATION
  Report Type: 
  Country: None (occurrence: None)
  Receive Date: 20120127
  Receipt Date: 20120124
  Transmission Date: 20120608
  Serious: Yes (Life-Threatening)
  Sender: FDA-Public Use
  Company Number: PHHY2012NL006630

PATIENT

DRUGS (3)
  1. METHYLPHENIDATE HCL [Concomitant]
     Dosage: 30 MG, UNK
  2. METHYLPHENIDATE [Suspect]
     Dosage: 10 MG, UNK
     Dates: start: 20081001
  3. CONCERTA [Concomitant]
     Dosage: 36 MG, UNK
     Dates: start: 20081001

REACTIONS (1)
  - ACUTE MYELOID LEUKAEMIA [None]
